FAERS Safety Report 17725118 (Version 1)
Quarter: 2020Q2

REPORT INFORMATION
  Report Type: Spontaneous
  Country: US (occurrence: US)
  Receive Date: 20200429
  Receipt Date: 20200429
  Transmission Date: 20200714
  Serious: No
  Sender: FDA-Public Use
  Company Number: US-INCYTE CORPORATION-2020IN003931

PATIENT

DRUGS (4)
  1. JAKAFI [Suspect]
     Active Substance: RUXOLITINIB
     Indication: WHITE BLOOD CELL COUNT INCREASED
     Dosage: 20 MILLIGRAM, BID
     Route: 048
     Dates: start: 20161122
  2. JAKAFI [Suspect]
     Active Substance: RUXOLITINIB
     Indication: IRON DEFICIENCY ANAEMIA
  3. JAKAFI [Suspect]
     Active Substance: RUXOLITINIB
     Indication: VITAMIN B COMPLEX DEFICIENCY
  4. JAKAFI [Suspect]
     Active Substance: RUXOLITINIB
     Indication: GASTROINTESTINAL DISORDER

REACTIONS (2)
  - Product physical issue [Unknown]
  - Off label use [Unknown]

NARRATIVE: CASE EVENT DATE: 20161122
